FAERS Safety Report 7224648-4 (Version None)
Quarter: 2011Q1

REPORT INFORMATION
  Report Type: 
  Country: None (occurrence: None)
  Receive Date: 20110113
  Receipt Date: 20101230
  Transmission Date: 20110831
  Serious: Yes (Death)
  Sender: FDA-Public Use
  Company Number: US-BRACCO-005771

PATIENT
  Sex: Female
  Weight: 76 kg

DRUGS (5)
  1. MULTIHANCE [Suspect]
     Indication: TINNITUS
     Dosage: GIVEN AT 12:15
     Route: 042
     Dates: start: 20101229, end: 20101229
  2. MULTIHANCE [Suspect]
     Indication: DEAFNESS
     Dosage: GIVEN AT 12:15
     Route: 042
     Dates: start: 20101229, end: 20101229
  3. MULTIHANCE [Suspect]
     Indication: NUCLEAR MAGNETIC RESONANCE IMAGING BRAIN
     Dosage: GIVEN AT 12:15
     Route: 042
     Dates: start: 20101229, end: 20101229
  4. MULTIHANCE [Suspect]
     Indication: VISUAL IMPAIRMENT
     Dosage: GIVEN AT 12:15
     Route: 042
     Dates: start: 20101229, end: 20101229
  5. BENICAR [Concomitant]
     Indication: HYPERTENSION

REACTIONS (8)
  - VENTRICULAR TACHYCARDIA [None]
  - GLOSSODYNIA [None]
  - PARAESTHESIA [None]
  - PAROSMIA [None]
  - RESPIRATORY ARREST [None]
  - DYSGEUSIA [None]
  - CONVULSION [None]
  - PULSELESS ELECTRICAL ACTIVITY [None]
